FAERS Safety Report 7332725-2 (Version None)
Quarter: 2011Q1

REPORT INFORMATION
  Report Type: 
  Country: None (occurrence: None)
  Receive Date: 20110222
  Receipt Date: 20110221
  Transmission Date: 20110831
  Serious: Yes (Other)
  Sender: FDA-Public Use
  Company Number: 2011MA001239

PATIENT
  Age: 11 Year
  Sex: Female

DRUGS (2)
  1. IRINOTECAN HCL [Suspect]
     Indication: CHEMOTHERAPY
     Dosage: 50 MG/M**2;QD;
  2. VINCRISTINE [Suspect]
     Dosage: 1.5 MG/M**2;

REACTIONS (4)
  - NEUROPATHY PERIPHERAL [None]
  - BONE MARROW TOXICITY [None]
  - NEUTROPENIA [None]
  - CONSTIPATION [None]
